FAERS Safety Report 6551904-5 (Version None)
Quarter: 2010Q1

REPORT INFORMATION
  Report Type: 
  Country: None (occurrence: None)
  Receive Date: 20100126
  Receipt Date: 20100122
  Transmission Date: 20100710
  Serious: Yes (Life-Threatening)
  Sender: FDA-Public Use
  Company Number: JP-B.I. PHARMACEUTICALS,INC./RIDGEFIELD-2009-BP-14852NB

PATIENT
  Sex: Female
  Weight: 52.8 kg

DRUGS (11)
  1. MICARDIS [Suspect]
     Indication: HYPERTENSION
     Dosage: 40 MG
     Route: 048
     Dates: start: 20091225, end: 20091226
  2. MYOCOR [Suspect]
     Indication: CARDIAC FAILURE
     Route: 042
     Dates: start: 20091225, end: 20091226
  3. YM150 [Suspect]
     Dates: start: 20091225, end: 20091226
  4. POTASSIUM IODIDE [Concomitant]
     Indication: BASEDOW'S DISEASE
     Dosage: 150 MG
     Route: 048
     Dates: start: 20091224, end: 20091227
  5. MERCAZOLE [Concomitant]
     Indication: BASEDOW'S DISEASE
     Dosage: 10 MG
     Route: 048
     Dates: start: 20091224, end: 20091227
  6. CALBLOCK [Concomitant]
     Indication: HYPERTENSION
     Dosage: 16 MG
     Route: 048
     Dates: start: 20091224, end: 20091226
  7. LASIX [Concomitant]
     Indication: HYPERTENSION
     Dosage: 20 MG
     Route: 048
     Dates: start: 20091225, end: 20091226
  8. FERO-GRADUMET [Concomitant]
     Indication: ANAEMIA
     Dosage: 105 MG
     Route: 048
     Dates: start: 20091224, end: 20091226
  9. VASOLAN [Concomitant]
     Indication: CARDIAC FAILURE
     Dosage: 120 MG
     Route: 048
     Dates: start: 20091225, end: 20091226
  10. HANP [Concomitant]
     Indication: CARDIAC FAILURE
     Dosage: 3000 MCG
     Route: 042
     Dates: start: 20091224, end: 20091226
  11. LENDORMIN [Concomitant]
     Dosage: 0.5DF
     Route: 048
     Dates: start: 20091226, end: 20091226

REACTIONS (2)
  - CARDIO-RESPIRATORY ARREST [None]
  - MULTI-ORGAN FAILURE [None]
